FAERS Safety Report 23101348 (Version 3)
Quarter: 2023Q4

REPORT INFORMATION
  Report Type: Spontaneous
  Country: US (occurrence: US)
  Receive Date: 20231024
  Receipt Date: 20231205
  Transmission Date: 20240110
  Serious: No
  Sender: FDA-Public Use
  Company Number: US-LUNDBECK-DKLU3069198

PATIENT
  Age: 58 Year
  Sex: Female

DRUGS (1)
  1. VYEPTI [Suspect]
     Active Substance: EPTINEZUMAB-JJMR
     Indication: Migraine
     Route: 041
     Dates: start: 202309

REACTIONS (15)
  - Disturbance in attention [Unknown]
  - Insomnia [Unknown]
  - Migraine [Unknown]
  - Pharyngeal swelling [Recovered/Resolved]
  - Musculoskeletal stiffness [Unknown]
  - Oropharyngeal pain [Recovered/Resolved]
  - Pruritus [Not Recovered/Not Resolved]
  - Constipation [Unknown]
  - Painful respiration [Unknown]
  - Nausea [Unknown]
  - Fatigue [Recovered/Resolved]
  - Headache [Not Recovered/Not Resolved]
  - Respiratory tract congestion [Recovered/Resolved]
  - Urticaria [Unknown]
  - Therapeutic response decreased [Unknown]

NARRATIVE: CASE EVENT DATE: 20230901
